FAERS Safety Report 15292986 (Version 1)
Quarter: 2020Q3

REPORT INFORMATION
  Report Type: Spontaneous
  Country: IT (occurrence: IT)
  Receive Date: 20180819
  Receipt Date: 20180819
  Transmission Date: 20201104
  Serious: Yes (Other)
  Sender: FDA-Public Use
  Company Number: IT-BAXTER-2018BAX021534

PATIENT
  Age: 86 Year
  Sex: Female

DRUGS (18)
  1. DICLOFENAC [Suspect]
     Active Substance: DICLOFENAC
     Indication: SPINAL PAIN
     Route: 065
  2. DULOXETINE. [Concomitant]
     Active Substance: DULOXETINE
     Indication: SPINAL PAIN
     Route: 065
  3. ETORICOXIB. [Suspect]
     Active Substance: ETORICOXIB
     Indication: SPINAL PAIN
     Route: 065
  4. NIMESULIDE [Suspect]
     Active Substance: NIMESULIDE
     Indication: SPINAL PAIN
     Route: 065
  5. HYDROMORPHONE [Concomitant]
     Active Substance: HYDROMORPHONE
     Indication: DRUG ABUSE
  6. KETOROLAC [Suspect]
     Active Substance: KETOROLAC TROMETHAMINE
     Indication: DRUG ABUSE
  7. DICLOFENAC [Suspect]
     Active Substance: DICLOFENAC
     Indication: DRUG ABUSE
  8. ETORICOXIB. [Suspect]
     Active Substance: ETORICOXIB
     Indication: DRUG ABUSE
  9. PREGABALIN. [Concomitant]
     Active Substance: PREGABALIN
     Indication: SPINAL PAIN
     Route: 065
  10. KETOROLAC [Suspect]
     Active Substance: KETOROLAC TROMETHAMINE
     Indication: SPINAL PAIN
     Route: 065
  11. OXYCODONE HYDROCHLORIDE. [Suspect]
     Active Substance: OXYCODONE HYDROCHLORIDE
     Indication: DRUG ABUSE
  12. TRAMADOL. [Suspect]
     Active Substance: TRAMADOL
     Indication: DRUG ABUSE
  13. DULOXETINE. [Concomitant]
     Active Substance: DULOXETINE
     Indication: DRUG ABUSE
  14. OXYCODONE HYDROCHLORIDE. [Suspect]
     Active Substance: OXYCODONE HYDROCHLORIDE
     Indication: SPINAL PAIN
     Route: 065
  15. NIMESULIDE [Suspect]
     Active Substance: NIMESULIDE
     Indication: DRUG ABUSE
  16. TRAMADOL. [Suspect]
     Active Substance: TRAMADOL
     Indication: SPINAL PAIN
     Route: 065
  17. HYDROMORPHONE [Concomitant]
     Active Substance: HYDROMORPHONE
     Indication: SPINAL PAIN
     Route: 065
  18. PREGABALIN. [Concomitant]
     Active Substance: PREGABALIN
     Indication: DRUG ABUSE

REACTIONS (2)
  - Disorientation [Unknown]
  - Drug abuse [Unknown]
